FAERS Safety Report 5229002-2 (Version None)
Quarter: 2007Q1

REPORT INFORMATION
  Report Type: 
  Country: None (occurrence: None)
  Receive Date: 20061201
  Receipt Date: 20060920
  Transmission Date: 20070707
  Serious: No
  Sender: FDA-Public Use
  Company Number: US200609005004

PATIENT
  Age: 50 Year
  Sex: Female

DRUGS (2)
  1. CYMBALTA [Suspect]
     Indication: DEPRESSION
     Dosage: 60 MG, DAILY (1/D), ORAL
     Route: 048
  2. DIOVAN [Concomitant]

REACTIONS (6)
  - DIARRHOEA [None]
  - DIZZINESS [None]
  - EATING DISORDER SYMPTOM [None]
  - NAUSEA [None]
  - TREMOR [None]
  - WEIGHT DECREASED [None]
